FAERS Safety Report 7302721-X (Version None)
Quarter: 2011Q1

REPORT INFORMATION
  Report Type: 
  Country: None (occurrence: None)
  Receive Date: 20110218
  Receipt Date: 20110211
  Transmission Date: 20110831
  Serious: Yes (Death, Other)
  Sender: FDA-Public Use
  Company Number: US-PFIZER INC-2010132929

PATIENT
  Sex: Male
  Weight: 63.492 kg

DRUGS (7)
  1. POLYETHYLENE GLYCOL [Concomitant]
     Indication: SUPPLEMENTATION THERAPY
     Dosage: UNK
  2. DEPAKOTE [Concomitant]
     Indication: ABNORMAL BEHAVIOUR
     Dosage: 125 MG, UNK
  3. VIAGRA [Suspect]
     Indication: PROSTATE CANCER
     Dosage: UNK
     Route: 048
     Dates: start: 19900101
  4. SEROQUEL [Concomitant]
     Indication: ABNORMAL BEHAVIOUR
     Dosage: UNK
  5. ZYPREXA [Concomitant]
     Indication: ABNORMAL BEHAVIOUR
     Dosage: 10 MG, UNK
  6. MIRTAZAPINE [Concomitant]
     Dosage: 15 MG, UNK
  7. NAPROXEN [Concomitant]
     Dosage: 500 MG, UNK

REACTIONS (2)
  - DEMENTIA ALZHEIMER'S TYPE [None]
  - NERVOUS SYSTEM DISORDER [None]
